FAERS Safety Report 9441091 (Version 1)
Quarter: 2013Q3

REPORT INFORMATION
  Report Type: Spontaneous
  Country: HR (occurrence: HR)
  Receive Date: 20130805
  Receipt Date: 20130805
  Transmission Date: 20140515
  Serious: Yes (Other)
  Sender: FDA-Public Use
  Company Number: CHPA2013HR012084

PATIENT
  Age: 54 Year
  Sex: 0
  Weight: 70 kg

DRUGS (2)
  1. VOLTAREN [Suspect]
     Indication: BACK PAIN
     Dosage: UNK UKN, UNK
     Route: 030
     Dates: start: 20130129, end: 20130129
  2. DEXAMETHASONE [Suspect]
     Dosage: UNK UKN, UNK
     Route: 030

REACTIONS (4)
  - Choking sensation [Recovered/Resolved]
  - Urticaria [Recovered/Resolved]
  - Pruritus [Recovered/Resolved]
  - Erythema [Recovered/Resolved]
